FAERS Safety Report 9465091 (Version 1)
Quarter: 2013Q3

REPORT INFORMATION
  Report Type: Spontaneous
  Country: US (occurrence: US)
  Receive Date: 20130819
  Receipt Date: 20130819
  Transmission Date: 20140515
  Serious: Yes (Other)
  Sender: FDA-Public Use
  Company Number: US-ROCHE-1262617

PATIENT
  Sex: Female

DRUGS (3)
  1. LUCENTIS [Suspect]
     Indication: AGE-RELATED MACULAR DEGENERATION
     Route: 050
  2. AVASTIN [Suspect]
     Indication: AGE-RELATED MACULAR DEGENERATION
     Route: 031
  3. AVASTIN [Suspect]
     Indication: OFF LABEL USE

REACTIONS (3)
  - Ocular hyperaemia [Recovered/Resolved]
  - Blindness transient [Recovered/Resolved]
  - Abnormal sensation in eye [Unknown]
